FAERS Safety Report 25604457 (Version 1)
Quarter: 2025Q3

REPORT INFORMATION
  Report Type: Other
  Country: EU (occurrence: EU)
  Receive Date: 20250725
  Receipt Date: 20250725
  Transmission Date: 20251020
  Serious: Yes (Other)
  Sender: ZYDUS PHARM
  Company Number: None

PATIENT

DRUGS (7)
  1. ANASTROZOLE [Suspect]
     Active Substance: ANASTROZOLE
     Indication: Medication error
     Route: 048
     Dates: start: 20250503, end: 20250503
  2. BISOPROLOL [Suspect]
     Active Substance: BISOPROLOL
     Indication: Medication error
     Route: 048
     Dates: start: 20250503, end: 20250503
  3. FUROSEMIDE [Suspect]
     Active Substance: FUROSEMIDE
     Indication: Medication error
     Route: 048
     Dates: start: 20250503, end: 20250503
  4. ALDACTONE [Suspect]
     Active Substance: SPIRONOLACTONE
     Indication: Medication error
     Route: 048
     Dates: start: 20250503, end: 20250503
  5. CYAMEMAZINE [Suspect]
     Active Substance: CYAMEMAZINE
     Indication: Medication error
     Route: 048
     Dates: start: 20250503, end: 20250503
  6. ELIQUIS [Suspect]
     Active Substance: APIXABAN
     Indication: Medication error
     Route: 048
     Dates: start: 20250503, end: 20250503
  7. LORAZEPAM [Suspect]
     Active Substance: LORAZEPAM
     Indication: Medication error
     Route: 048
     Dates: start: 20250503, end: 20250503

REACTIONS (4)
  - Bradycardia [Recovered/Resolved]
  - Hypotension [Recovered/Resolved]
  - Product administration error [Recovered/Resolved]
  - Wrong patient received product [Recovered/Resolved]

NARRATIVE: CASE EVENT DATE: 20250503
